FAERS Safety Report 25127543 (Version 1)
Quarter: 2025Q1

REPORT INFORMATION
  Report Type: Spontaneous
  Country: PL (occurrence: PL)
  Receive Date: 20250327
  Receipt Date: 20250327
  Transmission Date: 20250408
  Serious: Yes (Other)
  Sender: AUROBINDO
  Company Number: PL-SANDOZ-SDZ2025PL014898

PATIENT
  Age: 61 Year
  Sex: Female

DRUGS (1)
  1. FULVESTRANT [Suspect]
     Active Substance: FULVESTRANT
     Indication: Product used for unknown indication
     Route: 065
     Dates: start: 20170828

REACTIONS (5)
  - Pancreas infection [Unknown]
  - Ocular melanoma [Unknown]
  - Device breakage [Unknown]
  - COVID-19 [Unknown]
  - Diverticulum intestinal [Unknown]

NARRATIVE: CASE EVENT DATE: 20201118
